FAERS Safety Report 7282645-7 (Version None)
Quarter: 2011Q1

REPORT INFORMATION
  Report Type: 
  Country: None (occurrence: None)
  Receive Date: 20110128
  Receipt Date: 20110120
  Transmission Date: 20110831
  Serious: Yes (Death)
  Sender: FDA-Public Use
  Company Number: 1000018334

PATIENT
  Age: 50 Year
  Sex: Female

DRUGS (7)
  1. PROPRANOLOL HYDROCHLORIDE [Suspect]
  2. TEMAZEPAM [Suspect]
  3. DIAZEPAM [Suspect]
  4. BUSPIRONE HCL [Suspect]
  5. TRAZODONE (TRAZODONE) [Suspect]
  6. ACETAMINIOPHEN/DIPHENHYDRAMINE(ACETAMINOPHEN, DIPHENHYDRAMINE) [Suspect]
  7. DOXEPIN HCL [Suspect]

REACTIONS (4)
  - CARDIAC ARREST [None]
  - COMPLETED SUICIDE [None]
  - RESPIRATORY ARREST [None]
  - MULTIPLE DRUG OVERDOSE INTENTIONAL [None]
